FAERS Safety Report 10310711 (Version 1)
Quarter: 2014Q3

REPORT INFORMATION
  Report Type: Spontaneous
  Country: GB (occurrence: None)
  Receive Date: 20140714
  Receipt Date: 20140714
  Transmission Date: 20150326
  Serious: Yes (Hospitalization, Other)
  Sender: FDA-Public Use
  Company Number: AUR-APL-2014-07341

PATIENT
  Age: 42 Year
  Sex: Male
  Weight: 83 kg

DRUGS (3)
  1. CODEINE (CODEINE) [Concomitant]
     Active Substance: CODEINE
  2. CLARITHROMYCIN. [Suspect]
     Active Substance: CLARITHROMYCIN
     Indication: POSTOPERATIVE CARE
     Route: 048
     Dates: start: 20140520, end: 20140522
  3. CLINDAMYCIN [Suspect]
     Active Substance: CLINDAMYCIN\CLINDAMYCIN PHOSPHATE
     Indication: PROPHYLAXIS
     Dates: start: 20140523, end: 20140523

REACTIONS (10)
  - Erythema [None]
  - Hypersensitivity [None]
  - Dermatitis bullous [None]
  - Skin exfoliation [None]
  - Local swelling [None]
  - Diarrhoea [None]
  - Rash macular [None]
  - Dermatitis exfoliative [None]
  - Rash pruritic [None]
  - Toxic epidermal necrolysis [None]

NARRATIVE: CASE EVENT DATE: 20140523
